FAERS Safety Report 7355044-7 (Version None)
Quarter: 2011Q1

REPORT INFORMATION
  Report Type: 
  Country: None (occurrence: None)
  Receive Date: 20110314
  Receipt Date: 20110314
  Transmission Date: 20110831
  Serious: Yes (Other)
  Sender: FDA-Public Use
  Company Number: None

PATIENT
  Age: 59 Year
  Sex: Male
  Weight: 90.7194 kg

DRUGS (2)
  1. PEGASYS [Suspect]
     Indication: HEPATITIS C
     Dates: start: 20100708, end: 20100917
  2. TRIAD ALCOHOL PADS [Suspect]

REACTIONS (3)
  - INJECTION SITE INFECTION [None]
  - PRODUCT QUALITY ISSUE [None]
  - PRODUCT CONTAMINATION [None]
